FAERS Safety Report 19029954 (Version 5)
Quarter: 2021Q3

REPORT INFORMATION
  Report Type: Report from Study
  Country: US (occurrence: US)
  Receive Date: 20210318
  Receipt Date: 20210721
  Transmission Date: 20211014
  Serious: Yes (Other)
  Sender: FDA-Public Use
  Company Number: NVSC2021US055538

PATIENT
  Sex: Female

DRUGS (2)
  1. TABRECTA [Suspect]
     Active Substance: CAPMATINIB
     Indication: PRODUCT USED FOR UNKNOWN INDICATION
     Dosage: UNK
     Route: 048
  2. TABRECTA [Suspect]
     Active Substance: CAPMATINIB
     Route: 048

REACTIONS (12)
  - Peripheral swelling [Unknown]
  - Muscle spasms [Unknown]
  - Productive cough [Unknown]
  - Dyspnoea [Unknown]
  - Thrombosis [Unknown]
  - Eye pruritus [Unknown]
  - Fatigue [Unknown]
  - Eye swelling [Unknown]
  - Ear disorder [Unknown]
  - Eyelid cyst [Unknown]
  - Limb discomfort [Unknown]
  - Photophobia [Unknown]
